FAERS Safety Report 4792176-1 (Version None)
Quarter: 2005Q4

REPORT INFORMATION
  Report Type: 
  Country: None (occurrence: None)
  Receive Date: 20051007
  Receipt Date: 20050929
  Transmission Date: 20060501
  Serious: Yes (Hospitalization, Disabling)
  Sender: FDA-Public Use
  Company Number: US-MERCK-0510USA01681

PATIENT
  Age: 64 Year
  Sex: Male
  Weight: 105 kg

DRUGS (6)
  1. VIOXX [Suspect]
     Indication: ARTHRITIS
     Route: 048
     Dates: start: 20010109, end: 20040801
  2. VIOXX [Suspect]
     Indication: ARTHROSCOPY
     Route: 048
     Dates: start: 20010109, end: 20040801
  3. HYTRIN [Concomitant]
     Route: 065
  4. ALLEGRA [Concomitant]
     Route: 065
  5. TYLENOL (CAPLET) [Concomitant]
     Route: 065
  6. DARVOCET-N 100 [Concomitant]
     Route: 065

REACTIONS (17)
  - ACCELERATED HYPERTENSION [None]
  - ACUTE MYOCARDIAL INFARCTION [None]
  - CORONARY ARTERY DISEASE [None]
  - DIZZINESS [None]
  - HAEMORRHAGE [None]
  - HEAD INJURY [None]
  - HYPERLIPIDAEMIA [None]
  - HYPOTENSION [None]
  - ILEUS [None]
  - INTERVERTEBRAL DISC DEGENERATION [None]
  - MENISCUS LESION [None]
  - MYOCARDIAL INFARCTION [None]
  - RENAL CELL CARCINOMA STAGE UNSPECIFIED [None]
  - ROTATOR CUFF SYNDROME [None]
  - SQUAMOUS CELL CARCINOMA [None]
  - SYNCOPE [None]
  - TENDON RUPTURE [None]
